FAERS Safety Report 7747254-1 (Version None)
Quarter: 2011Q3

REPORT INFORMATION
  Report Type: 
  Country: None (occurrence: None)
  Receive Date: 20110913
  Receipt Date: 20110901
  Transmission Date: 20111222
  Serious: No
  Sender: FDA-Public Use
  Company Number: US-CELGENEUS-163-21880-11031577

PATIENT
  Sex: Female

DRUGS (7)
  1. LUNESTA [Concomitant]
     Dosage: 3 MILLIGRAM
     Route: 065
  2. PLAQUENIL [Concomitant]
     Dosage: 200 MILLIGRAM
     Route: 065
  3. CELL CEPT [Concomitant]
     Dosage: 500 MILLIGRAM
     Route: 065
  4. REVLIMID [Suspect]
     Dosage: 15 MILLIGRAM
     Route: 048
     Dates: start: 20101221
  5. COLCHICINE [Concomitant]
     Dosage: .6 MILLIGRAM
     Route: 065
  6. LIDEX [Concomitant]
     Route: 065
  7. COLCHICINE [Concomitant]

REACTIONS (2)
  - DRY MOUTH [None]
  - VAGINAL DISCHARGE [None]
